FAERS Safety Report 5743368-6 (Version None)
Quarter: 2008Q2

REPORT INFORMATION
  Report Type: 
  Country: None (occurrence: None)
  Receive Date: 20080519
  Receipt Date: 20080519
  Transmission Date: 20081010
  Serious: No
  Sender: FDA-Public Use
  Company Number: None

PATIENT
  Age: 27 Year
  Sex: Female
  Weight: 61.2356 kg

DRUGS (1)
  1. KENALOG [Suspect]
     Indication: MUSCLE STRAIN
     Dates: start: 20070709, end: 20070709

REACTIONS (3)
  - EMOTIONAL DISORDER [None]
  - ILL-DEFINED DISORDER [None]
  - MENTAL DISORDER [None]
